FAERS Safety Report 5567577-4 (Version None)
Quarter: 2007Q4

REPORT INFORMATION
  Report Type: 
  Country: None (occurrence: None)
  Receive Date: 20071214
  Receipt Date: 20071204
  Transmission Date: 20080405
  Serious: Yes (Hospitalization)
  Sender: FDA-Public Use
  Company Number: OMPQ-NO-0711S-1347

PATIENT
  Age: 81 Year
  Sex: Female

DRUGS (10)
  1. OMNIPAQUE 300 [Suspect]
     Indication: ROUTINE HEALTH MAINTENANCE
     Dosage: NR, SINGLE DOSE; IV
     Route: 042
     Dates: start: 20071101, end: 20071101
  2. MITIGLINIDE                 (GLUFAST) [Concomitant]
  3. BEZAFIBRATE                     (BEZATOL SR) [Concomitant]
  4. CANDESARTAN CILEXETIL                   (BLOPRESS) [Concomitant]
  5. CARVEDILOL          (ARTIST) [Concomitant]
  6. BENIDIPINE HYDROCHLORIDE        (CONIEL) [Concomitant]
  7. FAMOTIDINE                 (GASTER D) [Concomitant]
  8. TRICHLORMETHIAZIDE                  (FLUITRAN) [Concomitant]
  9. SUCRALFATE                 (ULCERMIN) [Concomitant]
  10. DIAZEPAM                 (CERCINE)) [Concomitant]

REACTIONS (3)
  - ALANINE AMINOTRANSFERASE INCREASED [None]
  - ASPARTATE AMINOTRANSFERASE INCREASED [None]
  - JAUNDICE [None]
